FAERS Safety Report 5226020-5 (Version None)
Quarter: 2007Q1

REPORT INFORMATION
  Report Type: 
  Country: None (occurrence: None)
  Receive Date: 20070201
  Receipt Date: 20070122
  Transmission Date: 20070707
  Serious: Yes (Hospitalization)
  Sender: FDA-Public Use
  Company Number: DE-ABBOTT-07P-062-0356588-00

PATIENT
  Age: 44 Year
  Sex: Female

DRUGS (9)
  1. KALETRA [Suspect]
     Indication: HIV INFECTION
     Dosage: 2X5 ML
     Route: 051
     Dates: start: 20060223
  2. MORPHINE 10 MG RETARD [Concomitant]
     Indication: DRUG USE FOR UNKNOWN INDICATION
     Route: 048
  3. LAXANS [Concomitant]
     Indication: DRUG USE FOR UNKNOWN INDICATION
  4. LYRICA [Concomitant]
     Indication: DRUG USE FOR UNKNOWN INDICATION
     Route: 048
  5. AMINONEURIN [Concomitant]
     Indication: DRUG USE FOR UNKNOWN INDICATION
  6. ESOMEPRAZOLE MAGNESIUM [Concomitant]
     Indication: DRUG USE FOR UNKNOWN INDICATION
  7. NOVAMINSULFON [Concomitant]
     Indication: DRUG USE FOR UNKNOWN INDICATION
  8. FOLSAN 5 MG [Concomitant]
     Indication: DRUG USE FOR UNKNOWN INDICATION
  9. INVIRASE 500 [Concomitant]
     Indication: HIV INFECTION
     Dates: start: 20060223

REACTIONS (2)
  - UROSEPSIS [None]
  - VIRAL LOAD INCREASED [None]
